FAERS Safety Report 24425605 (Version 2)
Quarter: 2025Q1

REPORT INFORMATION
  Report Type: Spontaneous
  Country: AR (occurrence: AR)
  Receive Date: 20241011
  Receipt Date: 20250109
  Transmission Date: 20250409
  Serious: Yes (Hospitalization, Other)
  Sender: AMGEN
  Company Number: AR-PFIZER INC-202400270409

PATIENT
  Age: 64 Year
  Sex: Male

DRUGS (2)
  1. ENBREL [Suspect]
     Active Substance: ETANERCEPT
     Indication: Rheumatoid arthritis
     Route: 065
     Dates: start: 20081001
  2. ENBREL [Suspect]
     Active Substance: ETANERCEPT
     Dosage: 50 MG, WEEKLY
     Route: 065
     Dates: start: 20081001

REACTIONS (9)
  - Myocardial infarction [Unknown]
  - Pneumonia [Unknown]
  - Intentional product misuse [Unknown]
  - Pain in extremity [Unknown]
  - Dysstasia [Unknown]
  - Arthralgia [Unknown]
  - Dengue fever [Unknown]
  - Pain [Unknown]
  - Spinal osteoarthritis [Unknown]
